FAERS Safety Report 7333371-7 (Version None)
Quarter: 2011Q1

REPORT INFORMATION
  Report Type: 
  Country: None (occurrence: None)
  Receive Date: 20110304
  Receipt Date: 20110218
  Transmission Date: 20110831
  Serious: Yes (Death, Other)
  Sender: FDA-Public Use
  Company Number: JP-CELGENEUS-087-21880-10121939

PATIENT
  Sex: Female

DRUGS (12)
  1. OXINORM [Concomitant]
     Dosage: ADEQUATE DOSE
     Route: 048
     Dates: start: 20110126, end: 20110207
  2. LAXOBERON [Concomitant]
     Dosage: ADEQUATE DOSE
     Route: 048
     Dates: start: 20090801, end: 20110206
  3. LENADEX [Suspect]
     Indication: MULTIPLE MYELOMA
     Dosage: 20 MILLIGRAM
     Route: 048
     Dates: start: 20101115, end: 20101206
  4. LENADEX [Suspect]
     Dosage: 20 MILLIGRAM
     Route: 048
     Dates: start: 20110119, end: 20110207
  5. MUCOSTA [Concomitant]
     Dosage: 300 MILLIGRAM
     Route: 048
     Dates: start: 20101228, end: 20110126
  6. TEGRETOL [Concomitant]
     Dosage: 200 MILLIGRAM
     Route: 048
     Dates: start: 20110105, end: 20110126
  7. REVLIMID [Suspect]
     Indication: MULTIPLE MYELOMA
     Dosage: 10 MILLIGRAM
     Route: 048
     Dates: start: 20101115, end: 20101205
  8. DUROTEP [Concomitant]
     Dosage: 2.1 MILLIGRAM
     Route: 061
     Dates: start: 20101215, end: 20110207
  9. REVLIMID [Suspect]
     Dosage: 10 MILLIGRAM
     Route: 048
     Dates: start: 20101215, end: 20110104
  10. REVLIMID [Suspect]
     Dosage: 10 MILLIGRAM
     Route: 048
     Dates: start: 20110112, end: 20110201
  11. LENADEX [Suspect]
     Dosage: 20 MILLIGRAM
     Route: 048
     Dates: start: 20101215, end: 20110112
  12. MALFA [Concomitant]
     Dosage: 30 MILLILITER
     Route: 048
     Dates: start: 20101228, end: 20110126

REACTIONS (4)
  - SUDDEN DEATH [None]
  - PLATELET COUNT DECREASED [None]
  - NEUTROPHIL COUNT DECREASED [None]
  - RENAL DISORDER [None]
